FAERS Safety Report 23218282 (Version 1)
Quarter: 2023Q4

REPORT INFORMATION
  Report Type: Spontaneous
  Country: US (occurrence: None)
  Receive Date: 20231121
  Receipt Date: 20231121
  Transmission Date: 20240110
  Serious: No
  Sender: FDA-Public Use
  Company Number: None

PATIENT

DRUGS (1)
  1. GAMUNEX-C [Suspect]
     Active Substance: HUMAN IMMUNOGLOBULIN G

REACTIONS (7)
  - Nausea [None]
  - Vomiting [None]
  - Decreased appetite [None]
  - Headache [None]
  - Photosensitivity reaction [None]
  - Musculoskeletal stiffness [None]
  - Infusion related reaction [None]
